FAERS Safety Report 14018009 (Version 1)
Quarter: 2017Q3

REPORT INFORMATION
  Report Type: Spontaneous
  Country: GB (occurrence: GB)
  Receive Date: 20170928
  Receipt Date: 20170928
  Transmission Date: 20171128
  Serious: Yes (Disabling, Other)
  Sender: FDA-Public Use
  Company Number: GB-AUROBINDO-AUR-APL-2017-40733

PATIENT
  Age: 28 Year
  Sex: Female
  Weight: 53 kg

DRUGS (2)
  1. TOPIRAMATE 25MG [Suspect]
     Active Substance: TOPIRAMATE
     Indication: MIGRAINE
     Dosage: 25 MG, UNK
     Route: 048
     Dates: start: 20170519, end: 20170520
  2. CITALOPRAM [Concomitant]
     Active Substance: CITALOPRAM HYDROBROMIDE
     Indication: ANXIETY
     Dosage: 20 MG, UNK
     Route: 048
     Dates: start: 201612

REACTIONS (2)
  - Myopia [Recovered/Resolved]
  - Accommodation disorder [Recovered/Resolved]

NARRATIVE: CASE EVENT DATE: 20170520
